FAERS Safety Report 6775104-9 (Version None)
Quarter: 2010Q2

REPORT INFORMATION
  Report Type: 
  Country: None (occurrence: None)
  Receive Date: 20100617
  Receipt Date: 20100607
  Transmission Date: 20101027
  Serious: Yes (Other)
  Sender: FDA-Public Use
  Company Number: B0661047A

PATIENT
  Age: 50 Year
  Sex: Male

DRUGS (1)
  1. ARIXTRA [Suspect]
     Indication: DEEP VEIN THROMBOSIS
     Route: 065

REACTIONS (1)
  - DEEP VEIN THROMBOSIS [None]
